FAERS Safety Report 9632199 (Version 1)
Quarter: 2013Q4

REPORT INFORMATION
  Report Type: Spontaneous
  Country: US (occurrence: None)
  Receive Date: 20131017
  Receipt Date: 20131017
  Transmission Date: 20140711
  Serious: Yes (Death, Hospitalization)
  Sender: FDA-Public Use
  Company Number: None

PATIENT
  Age: 62 Year
  Sex: Male

DRUGS (9)
  1. COUMADIN [Suspect]
     Indication: CEREBROVASCULAR ACCIDENT PROPHYLAXIS
     Route: 048
     Dates: start: 20130530, end: 20130605
  2. COUMADIN [Suspect]
     Indication: ANTICOAGULANT THERAPY
     Route: 048
     Dates: start: 20130530, end: 20130605
  3. ASPIRIN [Concomitant]
  4. DONEPZIL [Concomitant]
  5. LIDINOPRIL [Concomitant]
  6. SIMVISTATIN [Concomitant]
  7. COUMADIN [Concomitant]
  8. ARIPIPRAZOLE [Concomitant]
  9. ENOXAPARIN [Concomitant]

REACTIONS (3)
  - Cerebral haemorrhage [None]
  - Respiratory failure [None]
  - International normalised ratio decreased [None]
